FAERS Safety Report 9499718 (Version 1)
Quarter: 2013Q1

REPORT INFORMATION
  Report Type: Spontaneous
  Country: US (occurrence: None)
  Receive Date: 20130107
  Receipt Date: 20130107
  Transmission Date: 20140127
  Serious: No
  Sender: FDA-Public Use
  Company Number: PHEH2012US022244

PATIENT
  Age: 50 Year
  Sex: Female
  Weight: 56.7 kg

DRUGS (8)
  1. GILENYA (FINGOLIMOD) CAPSULE [Suspect]
     Indication: MULTIPLE SCLEROSIS
     Route: 048
     Dates: start: 20111122
  2. ZOLOFT (SERTRALINE HYDROCHLORIDE) TABLET, 100MG [Concomitant]
  3. CLONAZEPAM (CLONAZEPAM) TABLET, 1MG [Concomitant]
  4. METHYLPHENIDATE (METHYLPHENIDATE) TABLET, 54MG [Concomitant]
  5. VITAMIN B12 (CYANOCOBALAMIN) TABLET [Concomitant]
  6. FISH OIL (FISH OIL) CAPSULE [Concomitant]
  7. VITAMIN D (ERGOCALCIFEROL) CAPSULE [Concomitant]
  8. VITAMIN B6 (PYRIDOXINE HYDROCHLORIDE) TABLET, 250MG [Concomitant]

REACTIONS (8)
  - Liver function test abnormal [None]
  - White blood cell count decreased [None]
  - Alanine aminotransferase increased [None]
  - Blood bilirubin increased [None]
  - Blood bilirubin unconjugated increased [None]
  - Blood alkaline phosphatase increased [None]
  - Lymphocyte count decreased [None]
  - Neutrophil count decreased [None]
